FAERS Safety Report 4630997-6 (Version None)
Quarter: 2005Q2

REPORT INFORMATION
  Report Type: 
  Country: None (occurrence: None)
  Receive Date: 20050406
  Receipt Date: 20050406
  Transmission Date: 20051028
  Serious: Yes (Life-Threatening)
  Sender: FDA-Public Use
  Company Number: None

PATIENT
  Sex: Female
  Weight: 65.7716 kg

DRUGS (1)
  1. ACCUTANE [Suspect]
     Indication: ACNE
     Dosage: DAILY  ORAL
     Route: 048
     Dates: start: 20040814, end: 20050203

REACTIONS (2)
  - DEPRESSION [None]
  - SUICIDE ATTEMPT [None]
